FAERS Safety Report 9610643 (Version 2)
Quarter: 2014Q1

REPORT INFORMATION
  Report Type: Spontaneous
  Country: US (occurrence: US)
  Receive Date: 20131009
  Receipt Date: 20140110
  Transmission Date: 20141002
  Serious: Yes (Other)
  Sender: FDA-Public Use
  Company Number: US-AMGEN-USASP2013070977

PATIENT
  Age: 33 Week
  Sex: Male

DRUGS (6)
  1. ENBREL [Suspect]
     Indication: PRODUCT USED FOR UNKNOWN INDICATION
     Dosage: 50 MG, QWK
     Route: 064
     Dates: start: 2008, end: 201301
  2. HYDROXYCHLOROQUINE [Concomitant]
     Dosage: 200 MG, BID
     Route: 064
  3. PREDNISONE [Concomitant]
     Dosage: 5 MG, QD
     Route: 064
  4. PRENATAL FORMULA                   /07542801/ [Concomitant]
     Dosage: UNK UNK, QD
     Route: 064
  5. FOLIC ACID [Concomitant]
     Dosage: 400 MG, QD
     Route: 064
  6. CALCIUM [Concomitant]
     Dosage: 250 MG, QD
     Route: 064

REACTIONS (1)
  - Premature baby [Recovered/Resolved]
